FAERS Safety Report 21772607 (Version 1)
Quarter: 2022Q4

REPORT INFORMATION
  Report Type: Spontaneous
  Country: US (occurrence: US)
  Receive Date: 20221223
  Receipt Date: 20221223
  Transmission Date: 20230113
  Serious: No
  Sender: FDA-Public Use
  Company Number: US-GSKCCFUS-Case-01580770_AE-89318

PATIENT
  Sex: Female

DRUGS (2)
  1. ADVAIR DISKUS [Suspect]
     Active Substance: FLUTICASONE PROPIONATE\SALMETEROL XINAFOATE
     Indication: Product used for unknown indication
     Dosage: UNK UNK, BID, 250/50MCG 1X60D
  2. ADVAIR DISKUS [Suspect]
     Active Substance: FLUTICASONE PROPIONATE\SALMETEROL XINAFOATE
     Dosage: UNK, QD

REACTIONS (7)
  - Dyspnoea [Recovered/Resolved]
  - Tremor [Unknown]
  - Pain [Recovered/Resolved]
  - Wrong technique in device usage process [Recovered/Resolved]
  - Underdose [Unknown]
  - Prescribed underdose [Unknown]
  - Product complaint [Unknown]
